FAERS Safety Report 12468140 (Version 1)
Quarter: 2016Q2

REPORT INFORMATION
  Report Type: Spontaneous
  Country: AT (occurrence: AT)
  Receive Date: 20160615
  Receipt Date: 20160615
  Transmission Date: 20160815
  Serious: Yes (Hospitalization, Other)
  Sender: FDA-Public Use
  Company Number: AT-PFIZER INC-2016263594

PATIENT
  Age: 92 Year
  Sex: Female

DRUGS (4)
  1. INLYTA [Suspect]
     Active Substance: AXITINIB
     Dosage: 7 MG, DAILY
     Dates: start: 2013, end: 2013
  2. INLYTA [Suspect]
     Active Substance: AXITINIB
     Indication: RENAL CELL CARCINOMA
     Dosage: 5 MG, DAILY
     Dates: start: 201303
  3. INLYTA [Suspect]
     Active Substance: AXITINIB
     Dosage: 7 MG, DAILY
     Dates: start: 2013, end: 201502
  4. INLYTA [Suspect]
     Active Substance: AXITINIB
     Dosage: 10 MG, DAILY
     Dates: start: 2013, end: 2013

REACTIONS (6)
  - Epilepsy [Unknown]
  - Disease progression [Unknown]
  - Diarrhoea [Unknown]
  - Renal cell carcinoma [Unknown]
  - Movement disorder [Unknown]
  - Hypertensive crisis [Unknown]

NARRATIVE: CASE EVENT DATE: 2013
